FAERS Safety Report 11757522 (Version 1)
Quarter: 2015Q4

REPORT INFORMATION
  Report Type: Report from Study
  Country: US (occurrence: None)
  Receive Date: 20151117
  Receipt Date: 20151117
  Transmission Date: 20160304
  Serious: Yes (Other)
  Sender: FDA-Public Use
  Company Number: 2015US001408

PATIENT
  Age: 32 Year
  Sex: Female

DRUGS (15)
  1. GLASSIA [Suspect]
     Active Substance: .ALPHA.1-PROTEINASE INHIBITOR HUMAN
     Indication: ALPHA-1 ANTI-TRYPSIN DEFICIENCY
     Route: 042
     Dates: start: 20150202, end: 20150202
  2. PAXIL /00830802/ (PAROXETINE HYDROCHLORIDE) [Concomitant]
  3. KLONOPIN [Concomitant]
     Active Substance: CLONAZEPAM
  4. FLEXERIL /00428402/  (CYCLOBENZAPRINE HYDROCHLORIDE) [Concomitant]
  5. ADVAIR DISKUS [Concomitant]
     Active Substance: FLUTICASONE PROPIONATE\SALMETEROL XINAFOATE
  6. ASPIRIN /00002701/ (ACETYLSALICYLIC ACID) [Concomitant]
  7. NAPROXEN. [Concomitant]
     Active Substance: NAPROXEN
  8. TORADOL [Concomitant]
     Active Substance: KETOROLAC TROMETHAMINE
  9. PROVENTIL /00139501/ (SALBUTAMOL) [Concomitant]
  10. GUAIFENESIN/CODEINE (CODEINE PHOSPHATE, GUAIFENESIN) [Concomitant]
  11. ACCUNEB (SALBUTAMOL SULFATE) [Concomitant]
  12. PROAIR HFA [Concomitant]
     Active Substance: ALBUTEROL SULFATE
  13. AMOXICILLIN. [Concomitant]
     Active Substance: AMOXICILLIN
  14. GLASSIA [Suspect]
     Active Substance: .ALPHA.1-PROTEINASE INHIBITOR HUMAN
     Indication: EMPHYSEMA
     Route: 042
     Dates: start: 20150202, end: 20150202
  15. ATENOLOL. [Concomitant]
     Active Substance: ATENOLOL

REACTIONS (4)
  - Sleep disorder [None]
  - Lung infiltration [None]
  - Treatment noncompliance [None]
  - Urticaria [None]

NARRATIVE: CASE EVENT DATE: 20150203
